FAERS Safety Report 17896202 (Version 1)
Quarter: 2020Q2

REPORT INFORMATION
  Report Type: Spontaneous
  Country: CH (occurrence: CH)
  Receive Date: 20200615
  Receipt Date: 20200615
  Transmission Date: 20200714
  Serious: Yes (Other)
  Sender: FDA-Public Use
  Company Number: CH-PFIZER INC-2020160962

PATIENT
  Age: 63 Year
  Sex: Female
  Weight: 70 kg

DRUGS (2)
  1. AROMASIN [Suspect]
     Active Substance: EXEMESTANE
     Indication: LOBULAR BREAST CARCINOMA IN SITU
     Dosage: 25 MG, 1X/DAY
     Route: 048
     Dates: start: 201805, end: 20191210
  2. LETROZOLE. [Suspect]
     Active Substance: LETROZOLE
     Indication: LOBULAR BREAST CARCINOMA IN SITU
     Dosage: 2.5 MG, 1X/DAY
     Route: 048
     Dates: start: 20200115

REACTIONS (5)
  - Back pain [Recovered/Resolved]
  - Muscular weakness [Unknown]
  - Neuralgia [Recovered/Resolved]
  - Myalgia [Recovered/Resolved]
  - Arthralgia [Recovered/Resolved]

NARRATIVE: CASE EVENT DATE: 201808
